FAERS Safety Report 8255187-X (Version None)
Quarter: 2012Q1

REPORT INFORMATION
  Report Type: 
  Country: None (occurrence: None)
  Receive Date: 20120322
  Receipt Date: 20120210
  Transmission Date: 20120608
  Serious: Yes (Hospitalization)
  Sender: FDA-Public Use
  Company Number: UTC-015503

PATIENT
  Age: 43 Year
  Sex: Female
  Weight: 66.36 kg

DRUGS (4)
  1. DIURETICS (DIURETICS) [Concomitant]
  2. TYVASO [Suspect]
     Indication: PULMONARY ARTERIAL HYPERTENSION
     Dosage: 18 TO 54 MICROGRAMS (4 IN 1 D) , INHALATION
     Route: 055
     Dates: start: 20100628
  3. LETAIRIS [Concomitant]
  4. COUMADIN [Concomitant]

REACTIONS (1)
  - DYSPNOEA [None]
